FAERS Safety Report 9248028 (Version 1)
Quarter: 2013Q1

REPORT INFORMATION
  Report Type: Spontaneous
  Country: US (occurrence: None)
  Receive Date: 20130305
  Receipt Date: 20130305
  Transmission Date: 20140127
  Serious: Yes (Other)
  Sender: FDA-Public Use
  Company Number: 163-21880-12053644

PATIENT
  Age: 68 Year
  Sex: Female
  Weight: 63.05 kg

DRUGS (11)
  1. REVLIMID [Suspect]
     Indication: PLASMA CELL MYELOMA
     Dosage: 25MG, 21 IN 21 D, PO
     Route: 048
     Dates: start: 20100510
  2. ACYCLOVIR (ACICLOVIR) (ACICLOVIR) [Concomitant]
  3. AREDIA (PAMIDRONATE DISODIUM) [Concomitant]
  4. ASPIRIN (ACETYLSALICYCLIC ACID) [Concomitant]
  5. CALTRATE (CALCIUM CARBONATE) [Concomitant]
  6. DEXAMETHASONE (DEXAMETHASONE) [Concomitant]
  7. GLUTAMIDE (LEVOGLUTAMIDE) [Concomitant]
  8. PRILOSEC [Concomitant]
  9. SIMVASTATIN (SIMVASTATIN) [Concomitant]
  10. VELCADE (BORTEZMIB) [Concomitant]
  11. VITAMIN D (ERGOCALCIFEROL) [Concomitant]

REACTIONS (1)
  - Fatigue [None]
